FAERS Safety Report 20335842 (Version 1)
Quarter: 2022Q1

REPORT INFORMATION
  Report Type: Spontaneous
  Country: CN (occurrence: CN)
  Receive Date: 20220114
  Receipt Date: 20220114
  Transmission Date: 20220423
  Serious: Yes (Hospitalization)
  Sender: FDA-Public Use
  Company Number: CN-BAYER-2022A005954

PATIENT
  Age: 59 Year
  Sex: Male
  Weight: 62 kg

DRUGS (2)
  1. GLUCOBAY [Suspect]
     Active Substance: ACARBOSE
     Indication: Diabetes mellitus
     Dosage: 50 MG, TID
     Route: 048
     Dates: start: 20201010, end: 20211227
  2. INSULIN GLARGINE [Suspect]
     Active Substance: INSULIN GLARGINE
     Indication: Diabetes mellitus
     Dosage: 16 U, QD
     Route: 058
     Dates: start: 20200110, end: 20211227

REACTIONS (5)
  - Diabetic complication [None]
  - Drug hypersensitivity [Recovering/Resolving]
  - Scab [None]
  - Pigmentation disorder [Recovering/Resolving]
  - Rash vesicular [Recovering/Resolving]

NARRATIVE: CASE EVENT DATE: 20211227
